FAERS Safety Report 4455777-6 (Version None)
Quarter: 2004Q3

REPORT INFORMATION
  Report Type: 
  Country: None (occurrence: None)
  Receive Date: 20040917
  Receipt Date: 20040906
  Transmission Date: 20050211
  Serious: No
  Sender: FDA-Public Use
  Company Number: 04P-056-0272659-00

PATIENT
  Sex: Female

DRUGS (1)
  1. VALPROATE SODIUM [Suspect]
     Indication: CONGENITAL TOXOPLASMOSIS
     Dosage: 500 MG, 2 IN 1 D, ORAL
     Route: 048
     Dates: start: 20040601

REACTIONS (2)
  - COAGULATION FACTOR DECREASED [None]
  - PROTHROMBIN LEVEL DECREASED [None]
